FAERS Safety Report 7327937-8 (Version None)
Quarter: 2011Q1

REPORT INFORMATION
  Report Type: 
  Country: None (occurrence: None)
  Receive Date: 20110225
  Receipt Date: 20110225
  Transmission Date: 20110831
  Serious: Yes (Other)
  Sender: FDA-Public Use
  Company Number: None

PATIENT
  Age: 54 Year
  Sex: Male
  Weight: 104.3273 kg

DRUGS (9)
  1. SINGULAIR [Suspect]
     Indication: RHINITIS
     Dosage: 10MG 1XDAY ORAL 047
     Route: 048
     Dates: start: 20110103, end: 20110211
  2. PREDNISONE [Suspect]
     Indication: ASTHMA
     Dosage: 20MG 2XDAY ORAL 047
     Route: 048
     Dates: start: 20110207, end: 20110211
  3. SYMBICORT [Concomitant]
  4. QVAR 80 [Concomitant]
  5. AVELOX [Concomitant]
  6. FEXOFENADINE [Concomitant]
  7. PROAIR HFA [Concomitant]
  8. ADVAIR DISKUS 100/50 [Concomitant]
  9. FLONASE [Concomitant]

REACTIONS (3)
  - INSOMNIA [None]
  - ANXIETY [None]
  - AGITATION [None]
